FAERS Safety Report 18681051 (Version 1)
Quarter: 2020Q4

REPORT INFORMATION
  Report Type: Spontaneous
  Country: US (occurrence: US)
  Receive Date: 20201228
  Receipt Date: 20201228
  Transmission Date: 20210114
  Serious: Yes (Hospitalization)
  Sender: FDA-Public Use
  Company Number: None

PATIENT
  Age: 90 Year
  Sex: Male

DRUGS (1)
  1. FUROSEMIDE (FUROSEMIDE 20MG TAB) [Suspect]
     Active Substance: FUROSEMIDE
     Indication: OEDEMA
     Route: 048
     Dates: start: 20201127, end: 20201215

REACTIONS (9)
  - Tubulointerstitial nephritis [None]
  - Diarrhoea [None]
  - White blood cells urine [None]
  - Prerenal failure [None]
  - Benign prostatic hyperplasia [None]
  - Hyperkalaemia [None]
  - Hypovolaemia [None]
  - Polyuria [None]
  - Acute kidney injury [None]

NARRATIVE: CASE EVENT DATE: 20201214
